FAERS Safety Report 6467480-1 (Version None)
Quarter: 2009Q4

REPORT INFORMATION
  Report Type: 
  Country: None (occurrence: None)
  Receive Date: 20091127
  Receipt Date: 20091113
  Transmission Date: 20100525
  Serious: Yes (Other)
  Sender: FDA-Public Use
  Company Number: 2009SP036545

PATIENT
  Sex: Male

DRUGS (7)
  1. REMERON [Suspect]
     Indication: DEPRESSION
     Dosage: 30 MG;PO ; 45 MG;PO ; 30 MG;PO
     Route: 048
     Dates: start: 20090926, end: 20091009
  2. REMERON [Suspect]
     Indication: DEPRESSION
     Dosage: 30 MG;PO ; 45 MG;PO ; 30 MG;PO
     Route: 048
     Dates: start: 20091010, end: 20091023
  3. REMERON [Suspect]
     Indication: DEPRESSION
     Dosage: 30 MG;PO ; 45 MG;PO ; 30 MG;PO
     Route: 048
     Dates: start: 20091024, end: 20091031
  4. MIRTAZAPINE [Suspect]
     Indication: DEPRESSION
     Dosage: 15 MG;QD;PO
     Route: 048
     Dates: start: 20090912, end: 20090925
  5. TRYPTANOL [Concomitant]
  6. DEPROMEL [Concomitant]
  7. ROHYPNOL [Concomitant]

REACTIONS (2)
  - HYPOAESTHESIA [None]
  - PARALYSIS [None]
